FAERS Safety Report 23179971 (Version 2)
Quarter: 2023Q4

REPORT INFORMATION
  Report Type: Report from Study
  Country: CO (occurrence: CO)
  Receive Date: 20231114
  Receipt Date: 20231127
  Transmission Date: 20240110
  Serious: Yes (Other)
  Sender: FDA-Public Use
  Company Number: CO-BAYER-2023A161650

PATIENT
  Sex: Male

DRUGS (1)
  1. EYLEA [Suspect]
     Active Substance: AFLIBERCEPT
     Indication: Product used for unknown indication
     Dosage: 2 MG, SOLUTION FOR INJECTION, 40 MG/ML
     Route: 031
     Dates: start: 20191001

REACTIONS (3)
  - Blindness unilateral [Unknown]
  - Choroidal effusion [Unknown]
  - Vision blurred [Unknown]
